FAERS Safety Report 21163614 (Version 1)
Quarter: 2022Q3

REPORT INFORMATION
  Report Type: Report from Study
  Country: BR (occurrence: BR)
  Receive Date: 20220802
  Receipt Date: 20220802
  Transmission Date: 20221027
  Serious: Yes (Other)
  Sender: FDA-Public Use
  Company Number: BR-ABBVIE-22K-020-4486030-00

PATIENT
  Sex: Female
  Weight: 65 kg

DRUGS (1)
  1. RINVOQ [Suspect]
     Active Substance: UPADACITINIB
     Indication: Rheumatoid arthritis
     Route: 048
     Dates: start: 20210916

REACTIONS (14)
  - Syncope [Unknown]
  - Arthralgia [Not Recovered/Not Resolved]
  - Abdominal pain upper [Unknown]
  - Blood pressure decreased [Unknown]
  - Diabetes mellitus [Unknown]
  - Rheumatic fever [Recovered/Resolved]
  - Stress [Unknown]
  - Fatigue [Unknown]
  - Spinal pain [Unknown]
  - Joint range of motion decreased [Recovering/Resolving]
  - Vomiting [Unknown]
  - Rheumatic fever [Not Recovered/Not Resolved]
  - Gallbladder disorder [Unknown]
  - Weight increased [Unknown]

NARRATIVE: CASE EVENT DATE: 20210101
